FAERS Safety Report 7213750-9 (Version None)
Quarter: 2011Q1

REPORT INFORMATION
  Report Type: 
  Country: None (occurrence: None)
  Receive Date: 20110106
  Receipt Date: 20101230
  Transmission Date: 20110831
  Serious: Yes (Hospitalization)
  Sender: FDA-Public Use
  Company Number: US-ASTRAZENECA-2010SE59679

PATIENT
  Age: 29 Year
  Sex: Female
  Weight: 68 kg

DRUGS (4)
  1. PRILOSEC [Suspect]
     Indication: GASTROOESOPHAGEAL REFLUX DISEASE
     Dosage: DAILY
     Route: 048
  2. LEXAPRO [Concomitant]
     Indication: DEPRESSION
     Dosage: DAILY
     Route: 048
  3. PHENOBARBITAL [Concomitant]
     Indication: CONVULSION
     Dosage: DAILY
     Route: 048
  4. NEXIUM [Suspect]
     Indication: GASTROOESOPHAGEAL REFLUX DISEASE
     Route: 048
     Dates: start: 19990101

REACTIONS (2)
  - DRUG INEFFECTIVE [None]
  - SHUNT MALFUNCTION [None]
